FAERS Safety Report 7373042-4 (Version None)
Quarter: 2011Q1

REPORT INFORMATION
  Report Type: 
  Country: None (occurrence: None)
  Receive Date: 20110324
  Receipt Date: 20080130
  Transmission Date: 20110831
  Serious: Yes (Hospitalization, Other)
  Sender: FDA-Public Use
  Company Number: US-BAYER-200813551NA

PATIENT
  Sex: Female
  Weight: 85 kg

DRUGS (35)
  1. HEPARIN [Concomitant]
     Dosage: UNK
     Route: 042
     Dates: start: 20000711
  2. FENTANYL [Concomitant]
     Dosage: 1.1 MG, UNK
     Route: 042
     Dates: start: 20000717
  3. CRYOPRECIPITATES [Concomitant]
     Dosage: 204 ML, UNK
     Route: 042
     Dates: start: 20000717
  4. POTASSIUM CHLORIDE [Concomitant]
     Dosage: 20 MEQ, UNK
     Route: 042
  5. PAVULON [Concomitant]
     Dosage: 14 MG, UNK
     Route: 042
     Dates: start: 20000717
  6. CAPOTEN [Concomitant]
     Dosage: UNK
     Route: 042
     Dates: start: 20000607, end: 20000607
  7. PLATELETS [Concomitant]
     Dosage: 4 U, UNK
     Route: 042
     Dates: start: 20000717
  8. FORANE [Concomitant]
     Dosage: 2 %, UNK
     Dates: start: 20000717
  9. TRASYLOL [Suspect]
     Indication: TRICUSPID VALVE REPLACEMENT
     Dosage: 1 ML, ONCE (TEST DOSE)
     Route: 042
     Dates: start: 20000717, end: 20000717
  10. NITROGLYCERIN [Concomitant]
     Dosage: UNK
     Route: 042
     Dates: start: 20000717, end: 20000717
  11. NIPRIDE [Concomitant]
     Dosage: UNK
     Route: 042
     Dates: start: 20000717
  12. HEPARIN [Concomitant]
     Dosage: UNK
     Dates: start: 20000717
  13. K-DUR [Concomitant]
     Dosage: 20 MEQ, QD
     Route: 048
  14. TRASYLOL [Suspect]
     Indication: MITRAL VALVE REPAIR
     Dosage: 25 CC/HOUR
     Dates: start: 20000717, end: 20000717
  15. ENALAPRIL MALEATE [Concomitant]
     Dosage: UNK
     Route: 042
     Dates: start: 20000607, end: 20000607
  16. HUMAN RED BLOOD CELLS [Concomitant]
     Dosage: UNK
     Dates: start: 20000717
  17. PLATELETS [Concomitant]
     Dosage: UNK
  18. CALCIUM CHLORIDE [Concomitant]
     Dosage: 500 MG, UNK
     Route: 042
     Dates: start: 20000717, end: 20000717
  19. PROTAMINE SULFATE [Concomitant]
     Dosage: 500 MG, UNK
     Route: 042
     Dates: start: 20000717, end: 20000717
  20. INSULIN [Concomitant]
     Dosage: 30 U, UNK
     Route: 042
     Dates: start: 20000717
  21. TRASYLOL [Suspect]
     Indication: PULMONARY VALVE REPLACEMENT
     Dosage: 100 CC/HOUR FOR 30 MINUTES
     Dates: start: 20000717, end: 20000717
  22. LASIX [Concomitant]
     Dosage: 160 MG, UNK
     Route: 042
     Dates: start: 20000717
  23. DEMADEX [Concomitant]
     Dosage: UNK
     Route: 048
     Dates: start: 19990107
  24. ASPIRIN [Concomitant]
     Dosage: 325 MG, QD
     Route: 048
     Dates: start: 19990301
  25. ALDACTONE [Concomitant]
     Dosage: 25 MG, QD
     Route: 048
  26. PLASMA [Concomitant]
     Dosage: 4 U, UNK
     Route: 042
     Dates: start: 20000717
  27. VERSED [Concomitant]
     Dosage: 3 MG, UNK
     Route: 042
     Dates: start: 20000717, end: 20000717
  28. LIDOCAINE [Concomitant]
     Dosage: 100 MG, UNK
     Route: 042
     Dates: start: 20000717
  29. ANCEF [Concomitant]
     Dosage: 1.5 G, UNK
     Route: 042
     Dates: start: 20000717
  30. HUMAN RED BLOOD CELLS [Concomitant]
     Dosage: 8 U, UNK
     Route: 042
     Dates: start: 20000717
  31. NEO-SYNEPHRINOL [Concomitant]
     Dosage: UNK
     Route: 042
     Dates: start: 20000717, end: 20000717
  32. RINGER'S [Concomitant]
     Dosage: UNK
     Route: 042
     Dates: start: 20000717
  33. GENTAMICIN [Concomitant]
     Dosage: 80 MG, UNK
     Route: 042
     Dates: start: 20000125, end: 20000207
  34. COUMADIN [Concomitant]
     Dosage: UNK
     Route: 048
     Dates: start: 19990101
  35. LEVOPHED [Concomitant]
     Dosage: UNK
     Route: 042
     Dates: start: 20000717, end: 20000717

REACTIONS (9)
  - STRESS [None]
  - RENAL FAILURE [None]
  - ADVERSE DRUG REACTION [None]
  - PAIN [None]
  - EMOTIONAL DISTRESS [None]
  - RENAL INJURY [None]
  - FEAR [None]
  - ANXIETY [None]
  - RENAL IMPAIRMENT [None]
